FAERS Safety Report 24330494 (Version 2)
Quarter: 2024Q4

REPORT INFORMATION
  Report Type: Report from Study
  Country: US (occurrence: US)
  Receive Date: 20240918
  Receipt Date: 20241007
  Transmission Date: 20250114
  Serious: No
  Sender: ACADIA PHARMACEUTICALS
  Company Number: US-ACADIA PHARMACEUTICALS INC.-ACA-2024-PIM-005369

PATIENT
  Age: 63 Year
  Sex: Female

DRUGS (17)
  1. NUPLAZID [Suspect]
     Active Substance: PIMAVANSERIN TARTRATE
     Indication: Parkinson^s disease
     Dosage: 34 MILLIGRAM, QD
     Route: 048
     Dates: start: 20240412
  2. GABAPENTIN [Concomitant]
     Active Substance: GABAPENTIN
     Dosage: 800 MILLIGRAM
  3. NURTEC ODT [Concomitant]
     Active Substance: RIMEGEPANT SULFATE
     Dosage: 75 MILLIGRAM (EVERY OTHER DAY)
  4. ELIQUIS [Concomitant]
     Active Substance: APIXABAN
     Dosage: 5 MILLIGRAM
  5. ENTACAPONE [Concomitant]
     Active Substance: ENTACAPONE
     Dosage: 200 MILLIGRAM
  6. NITROGLYCERIN [Concomitant]
     Active Substance: NITROGLYCERIN
     Dosage: 0.3MG
  7. DULOXETINE [Concomitant]
     Active Substance: DULOXETINE
     Dosage: 60 MILLIGRAM
  8. FLECAINIDE [Concomitant]
     Active Substance: FLECAINIDE
     Dosage: 150
  9. CARBIDOPA\LEVODOPA [Concomitant]
     Active Substance: CARBIDOPA\LEVODOPA
     Dosage: 25/100
  10. OXYBUTYNIN [Concomitant]
     Active Substance: OXYBUTYNIN
     Dosage: ER, 10 MILLIGRAM
  11. ATORVASTATIN [Concomitant]
     Active Substance: ATORVASTATIN
     Dosage: 10 MILLIGRAM
  12. BUPROPION [Concomitant]
     Active Substance: BUPROPION
     Dosage: 150
  13. POTASSIUM [Concomitant]
     Active Substance: POTASSIUM
     Dosage: 10MEQ
  14. FUROSEMIDE [Concomitant]
     Active Substance: FUROSEMIDE
     Dosage: 40 MILLIGRAM
  15. CARVEDILOL [Concomitant]
     Active Substance: CARVEDILOL
     Dosage: 6.25MG
  16. DILTIAZEM [Concomitant]
     Active Substance: DILTIAZEM
     Dosage: 120 MILLIGRAM
  17. LATANOPROST [Concomitant]
     Active Substance: LATANOPROST
     Dosage: 0.005% (OPTHALMIC)

REACTIONS (2)
  - Migraine [Not Recovered/Not Resolved]
  - Stress [Unknown]

NARRATIVE: CASE EVENT DATE: 20240501
